FAERS Safety Report 23340616 (Version 1)
Quarter: 2023Q4

REPORT INFORMATION
  Report Type: Spontaneous
  Country: NL (occurrence: NL)
  Receive Date: 20231227
  Receipt Date: 20231227
  Transmission Date: 20240110
  Serious: Yes (Hospitalization)
  Sender: FDA-Public Use
  Company Number: None

PATIENT
  Age: 68 Year
  Sex: Female
  Weight: 92 kg

DRUGS (1)
  1. OZEMPIC [Suspect]
     Active Substance: SEMAGLUTIDE
     Indication: Type 2 diabetes mellitus
     Dosage: INJECTION LIQUID, 1MG/DOSE (MG/DOSE
     Dates: start: 20230425, end: 20231121

REACTIONS (2)
  - Wernicke^s encephalopathy [Recovered/Resolved]
  - Weight decreased [Recovered/Resolved]
